FAERS Safety Report 8625174-8 (Version None)
Quarter: 2012Q3

REPORT INFORMATION
  Report Type: 
  Country: None (occurrence: None)
  Receive Date: 20120827
  Receipt Date: 20120821
  Transmission Date: 20120928
  Serious: Yes (Other)
  Sender: FDA-Public Use
  Company Number: FR-BAXTER-2012BAX015376

PATIENT
  Age: 14 Year
  Sex: Male

DRUGS (2)
  1. KIOVIG [Suspect]
     Indication: KAWASAKI'S DISEASE
     Dosage: 2 G/KG
     Route: 042
  2. ASPIRIN [Concomitant]
     Indication: KAWASAKI'S DISEASE

REACTIONS (1)
  - DRUG INEFFECTIVE [None]
